FAERS Safety Report 8166157 (Version 3)
Quarter: 2014Q2

REPORT INFORMATION
  Report Type: Spontaneous
  Country: US (occurrence: US)
  Receive Date: 20111003
  Receipt Date: 20140523
  Transmission Date: 20141212
  Serious: Yes (Hospitalization)
  Sender: FDA-Public Use
  Company Number: US-GLAXOSMITHKLINE-A0939976A

PATIENT
  Age: 59 Year
  Sex: Male
  Weight: 78.2 kg

DRUGS (7)
  1. AVANDIA [Suspect]
     Indication: DIABETES MELLITUS
     Dosage: 4MG PER DAY
     Route: 048
     Dates: start: 200301, end: 200707
  2. METOPROLOL [Concomitant]
  3. HCTZ [Concomitant]
  4. GLUCOVANCE [Concomitant]
  5. LEVOTHYROXINE [Concomitant]
  6. PRAVASTATIN [Concomitant]
  7. DIOVAN [Concomitant]

REACTIONS (8)
  - Cardiac failure congestive [Not Recovered/Not Resolved]
  - Coronary artery bypass [Unknown]
  - Dizziness [Unknown]
  - Sleep apnoea syndrome [Unknown]
  - Insomnia [Unknown]
  - Weight decreased [Unknown]
  - Hypotonia [Unknown]
  - Pleural effusion [Unknown]
